FAERS Safety Report 16733257 (Version 3)
Quarter: 2019Q4

REPORT INFORMATION
  Report Type: Spontaneous
  Country: CA (occurrence: CA)
  Receive Date: 20190823
  Receipt Date: 20191110
  Transmission Date: 20200122
  Serious: Yes (Other)
  Sender: FDA-Public Use
  Company Number: CA-CELLTRION INC.-2019CA019796

PATIENT

DRUGS (8)
  1. INFLECTRA [Suspect]
     Active Substance: INFLIXIMAB-DYYB
     Dosage: 275 MG, 0, 2, 6 WEEKS THEN EVERY 8 WEEKS
     Route: 042
     Dates: start: 20190610, end: 20190610
  2. INFLECTRA [Suspect]
     Active Substance: INFLIXIMAB-DYYB
     Dosage: 10 MG PER KG EVERY 6 WEEKS
     Route: 042
     Dates: start: 20191028
  3. PREDNISONE. [Concomitant]
     Active Substance: PREDNISONE
     Dosage: UNK
     Dates: start: 20190807
  4. INFLECTRA [Suspect]
     Active Substance: INFLIXIMAB-DYYB
     Dosage: 275 MG, 0, 2, 6 WEEKS THEN EVERY 8 WEEKS
     Route: 042
     Dates: start: 20190408
  5. INFLECTRA [Suspect]
     Active Substance: INFLIXIMAB-DYYB
     Dosage: 10 MG PER KG EVERY 6 WEEKS
     Route: 042
     Dates: start: 20190808
  6. INFLECTRA [Suspect]
     Active Substance: INFLIXIMAB-DYYB
     Indication: CROHN^S DISEASE
     Dosage: 275 MG, 0, 2, 6 WEEKS THEN EVERY 8 WEEKS
     Route: 042
     Dates: start: 20190225
  7. INFLECTRA [Suspect]
     Active Substance: INFLIXIMAB-DYYB
     Dosage: 275 MG, 0, 2, 6 WEEKS THEN EVERY 8 WEEKS
     Route: 042
     Dates: start: 20190311
  8. INFLECTRA [Suspect]
     Active Substance: INFLIXIMAB-DYYB
     Dosage: 10 MG PER KG EVERY 6 WEEKS
     Route: 042
     Dates: start: 20190918

REACTIONS (17)
  - Feeling hot [Unknown]
  - Rash papular [Recovering/Resolving]
  - Oropharyngeal pain [Unknown]
  - Inappropriate schedule of product administration [Unknown]
  - Off label use [Unknown]
  - Chest discomfort [Unknown]
  - Cough [Unknown]
  - Oesophageal pain [Recovered/Resolved]
  - Pain [Unknown]
  - Drug level below therapeutic [Unknown]
  - Miliaria [Recovered/Resolved]
  - Condition aggravated [Unknown]
  - Erythema [Recovering/Resolving]
  - Body temperature increased [Unknown]
  - Rash [Recovering/Resolving]
  - Sleep disorder due to general medical condition, insomnia type [Unknown]
  - Headache [Unknown]

NARRATIVE: CASE EVENT DATE: 20190225
